FAERS Safety Report 25930710 (Version 3)
Quarter: 2025Q4

REPORT INFORMATION
  Report Type: Report from Study
  Country: EU (occurrence: EU)
  Receive Date: 20251016
  Receipt Date: 20251216
  Transmission Date: 20260118
  Serious: No
  Sender: PFIZER
  Company Number: EU-PFIZER INC-PV202500121880

PATIENT
  Age: 46 Year
  Sex: Female
  Weight: 61 kg

DRUGS (3)
  1. GENOTROPIN [Suspect]
     Active Substance: SOMATROPIN
     Indication: Hypopituitarism
     Dosage: 0.6 MG, DAILY
     Route: 058
     Dates: start: 20230619
  2. UTROGESTAN [Concomitant]
     Active Substance: PROGESTERONE
     Indication: Hypopituitarism
     Dosage: 300 MG, 1X/DAY
  3. ESTRADIOL [Concomitant]
     Active Substance: ESTRADIOL
     Indication: Hypopituitarism
     Dosage: 100 MG, 1X/DAY

REACTIONS (2)
  - Drug dose omission by device [Unknown]
  - Device information output issue [Unknown]

NARRATIVE: CASE EVENT DATE: 20251012
